FAERS Safety Report 6740352-0 (Version None)
Quarter: 2010Q2

REPORT INFORMATION
  Report Type: 
  Country: None (occurrence: None)
  Receive Date: 20100525
  Receipt Date: 20100517
  Transmission Date: 20101027
  Serious: Yes (Death)
  Sender: FDA-Public Use
  Company Number: US-GILEAD-2010-0029094

PATIENT
  Sex: Female

DRUGS (8)
  1. LETAIRIS [Suspect]
     Indication: PULMONARY ARTERIAL HYPERTENSION
     Route: 048
     Dates: start: 20081101, end: 20100414
  2. REMODULIN [Concomitant]
  3. REVATIO [Concomitant]
  4. FUROSEMIDE [Concomitant]
  5. ENALAPRIL [Concomitant]
  6. PANTOPRAZOLE [Concomitant]
  7. NIASPAN [Concomitant]
  8. POTASSIUM [Concomitant]

REACTIONS (1)
  - CARDIOPULMONARY FAILURE [None]
